FAERS Safety Report 21770814 (Version 1)
Quarter: 2022Q4

REPORT INFORMATION
  Report Type: Report from Study
  Country: FR (occurrence: FR)
  Receive Date: 20221223
  Receipt Date: 20221223
  Transmission Date: 20230112
  Serious: Yes (Death, Other)
  Sender: FDA-Public Use
  Company Number: FR-LMS-2022000191

PATIENT
  Age: 7 Month
  Sex: Female
  Weight: 5.48 kg

DRUGS (2)
  1. OXOMEMAZINE [Suspect]
     Active Substance: OXOMEMAZINE
     Indication: Viral infection
     Dosage: UNK (DOSE UNSPECIFIED)
     Route: 065
  2. ACETAMINOPHEN [Suspect]
     Active Substance: ACETAMINOPHEN
     Indication: Viral infection
     Dosage: UNK
     Route: 065

REACTIONS (2)
  - Sudden infant death syndrome [Fatal]
  - Contraindicated product administered [Fatal]
